FAERS Safety Report 10079107 (Version 2)
Quarter: 2014Q2

REPORT INFORMATION
  Report Type: Report from Study
  Country: US (occurrence: US)
  Receive Date: 20140415
  Receipt Date: 20140425
  Transmission Date: 20141212
  Serious: Yes (Other)
  Sender: FDA-Public Use
  Company Number: US-CELGENEUS-163-21880-14041194

PATIENT
  Age: 60 Year
  Sex: Female
  Weight: 95.3 kg

DRUGS (33)
  1. ATIVAN [Concomitant]
     Indication: PRODUCT USED FOR UNKNOWN INDICATION
     Dosage: 3 MILLIGRAM
     Route: 048
     Dates: start: 20140304
  2. PEG3350/ELECTROLYTES [Concomitant]
     Indication: PRODUCT USED FOR UNKNOWN INDICATION
     Route: 065
     Dates: start: 20140322
  3. PEG3350/ELECTROLYTES [Concomitant]
     Route: 065
     Dates: start: 20140403
  4. COMPAZINE [Concomitant]
     Indication: NAUSEA
     Dosage: 40 MILLIGRAM
     Route: 048
     Dates: start: 20120920
  5. TORSEMIDE [Concomitant]
     Indication: NAUSEA
     Dosage: 20 MILLIGRAM
     Route: 048
     Dates: start: 20131219
  6. REVLIMID [Suspect]
     Indication: PLASMA CELL MYELOMA
     Dosage: 15 MILLIGRAM
     Route: 048
     Dates: start: 20080923
  7. REVLIMID [Suspect]
     Dosage: 5 MILLIGRAM
     Route: 048
     Dates: start: 20140314, end: 20140328
  8. DEXAMETHASONE [Concomitant]
     Indication: PLASMA CELL MYELOMA
     Route: 065
  9. ENDOLAC [Concomitant]
     Indication: BACK PAIN
     Dosage: 600MG-400MG
     Route: 065
  10. ENDOLAC [Concomitant]
     Dosage: 600MG-400MG
     Route: 065
  11. ACYCLOVIR [Concomitant]
     Indication: PRODUCT USED FOR UNKNOWN INDICATION
     Dosage: 800 MILLIGRAM
     Route: 065
     Dates: start: 20131219
  12. ASPIRIN [Concomitant]
     Indication: PRODUCT USED FOR UNKNOWN INDICATION
     Dosage: 325 MILLIGRAM
     Route: 065
  13. TESSALON PERLES [Concomitant]
     Indication: COUGH
     Route: 065
  14. CETRIZINE [Concomitant]
     Indication: ALLERGY PROPHYLAXIS
     Dosage: 10 MILLIGRAM
     Route: 048
     Dates: start: 20080403
  15. ERYTHROMYCIN [Concomitant]
     Indication: PRODUCT USED FOR UNKNOWN INDICATION
     Dosage: 300-333MG
     Route: 065
  16. MUCINEX [Concomitant]
     Indication: PRODUCT USED FOR UNKNOWN INDICATION
     Dosage: 1200 MILLIGRAM
     Route: 065
  17. SYNTHROID [Concomitant]
     Indication: PRODUCT USED FOR UNKNOWN INDICATION
     Dosage: 137 MICROGRAM
     Route: 065
  18. LOPERAMIDE [Concomitant]
     Indication: PRODUCT USED FOR UNKNOWN INDICATION
     Route: 065
  19. SINGULAIR [Concomitant]
     Indication: PRODUCT USED FOR UNKNOWN INDICATION
     Dosage: 10 MILLIGRAM
     Route: 048
     Dates: start: 20130805
  20. OMEPRAZOLE [Concomitant]
     Indication: PRODUCT USED FOR UNKNOWN INDICATION
     Dosage: 40 MILLIGRAM
     Route: 048
  21. SPIRONOLACTONE-HYDROCHLOROTHIAZIDE [Concomitant]
     Indication: PRODUCT USED FOR UNKNOWN INDICATION
     Dosage: 1-1.5 MG
     Route: 048
  22. TRAZODONE [Concomitant]
     Indication: PRODUCT USED FOR UNKNOWN INDICATION
     Dosage: 50-100MG
     Route: 048
     Dates: start: 20140408
  23. AZITHROMYCIN [Concomitant]
     Indication: PRODUCT USED FOR UNKNOWN INDICATION
     Dosage: 500 MILLIGRAM
     Route: 048
     Dates: start: 20140318
  24. BENZONATATE [Concomitant]
     Indication: COUGH
     Dosage: 800 MILLIGRAM
     Route: 048
  25. BIOTIN [Concomitant]
     Indication: PRODUCT USED FOR UNKNOWN INDICATION
     Route: 048
  26. SYMBICORT [Concomitant]
     Indication: DYSPNOEA
     Dosage: 2 PUFFS
     Route: 055
  27. ETODOLAC [Concomitant]
     Indication: PAIN
     Dosage: 800 MILLIGRAM
     Route: 048
     Dates: start: 20131223
  28. ETODOLAC [Concomitant]
     Route: 048
     Dates: start: 20131023
  29. FERROUS GLUCONATE [Concomitant]
     Indication: PRODUCT USED FOR UNKNOWN INDICATION
     Dosage: 650 MILLIGRAM
     Route: 048
     Dates: start: 20140320
  30. FLUCONAZOLE [Concomitant]
     Indication: PRODUCT USED FOR UNKNOWN INDICATION
     Dosage: 200 MILLIGRAM
     Route: 048
     Dates: start: 20130702
  31. FLUCONAZOLE [Concomitant]
     Dosage: 200 MILLIGRAM
     Route: 048
     Dates: start: 20140320
  32. LEVALBUTEROL [Concomitant]
     Indication: PRODUCT USED FOR UNKNOWN INDICATION
     Dosage: 2 PUFFS
     Route: 048
     Dates: start: 20100309
  33. IMODIUM [Concomitant]
     Indication: PRODUCT USED FOR UNKNOWN INDICATION
     Dosage: 2 MILLIGRAM
     Route: 048
     Dates: start: 20130709

REACTIONS (1)
  - Myelodysplastic syndrome [Not Recovered/Not Resolved]
